FAERS Safety Report 25467665 (Version 2)
Quarter: 2025Q2

REPORT INFORMATION
  Report Type: Report from Study
  Country: US (occurrence: US)
  Receive Date: 20250623
  Receipt Date: 20250626
  Transmission Date: 20250716
  Serious: No
  Sender: BIOVITRUM
  Company Number: US-BIOVITRUM-2025-US-008697

PATIENT
  Age: 71 Year
  Sex: Female

DRUGS (1)
  1. KINERET [Suspect]
     Active Substance: ANAKINRA
     Indication: Rheumatoid arthritis
     Route: 058
     Dates: start: 20250531

REACTIONS (6)
  - Contusion [Unknown]
  - Inflammation [Unknown]
  - Product dose omission issue [Unknown]
  - Device difficult to use [Unknown]
  - Injection site erythema [Unknown]
  - Injection site urticaria [Unknown]
